FAERS Safety Report 17516085 (Version 2)
Quarter: 2020Q1

REPORT INFORMATION
  Report Type: Spontaneous
  Country: ES (occurrence: ES)
  Receive Date: 20200309
  Receipt Date: 20200317
  Transmission Date: 20200409
  Serious: Yes (Other)
  Sender: FDA-Public Use
  Company Number: ES-AMERICAN REGENT INC-2020000616

PATIENT
  Age: 50 Year
  Sex: Female

DRUGS (9)
  1. SINTROM [Concomitant]
     Active Substance: ACENOCOUMAROL
     Indication: PRODUCT USED FOR UNKNOWN INDICATION
     Dosage: 20 TABLETS, SPL
     Route: 048
     Dates: start: 20170721
  2. FERINJECT [Suspect]
     Active Substance: FERRIC CARBOXYMALTOSE
     Indication: THROMBOCYTOSIS
     Dosage: 5 VIALS (500 MG, 1 TOTAL)
     Route: 042
     Dates: start: 20200130, end: 20200130
  3. MIRTAZAPINA ALTER [Concomitant]
     Indication: PRODUCT USED FOR UNKNOWN INDICATION
     Dosage: 30 MG (30 MG, 1 IN 24 HR)
     Route: 048
     Dates: start: 20190510
  4. RIVOTRIL [Concomitant]
     Active Substance: CLONAZEPAM
     Indication: PRODUCT USED FOR UNKNOWN INDICATION
     Dosage: 60 TABLETS (2 MG, IN IN 1 D)
     Route: 048
     Dates: start: 20190515
  5. LORMETAZEPAM PENSA [Concomitant]
     Indication: PRODUCT USED FOR UNKNOWN INDICATION
     Dosage: 20 TABLETS (2 MG, 1 IN 24 HR)
     Route: 048
     Dates: start: 20161205
  6. OMEPRAZOL PENSA [Concomitant]
     Active Substance: OMEPRAZOLE MAGNESIUM
     Indication: PRODUCT USED FOR UNKNOWN INDICATION
     Dosage: 20 MG (20 MG, IN IN 1 D)
     Route: 048
     Dates: start: 20170614
  7. PREDNISONA CINFA [Concomitant]
     Active Substance: PREDNISONE
     Indication: PRODUCT USED FOR UNKNOWN INDICATION
     Dosage: 60 TABLETS (5 MG, 1 IN 1 D)
     Route: 048
     Dates: start: 20200107
  8. ACIDO ALENDRONICO SEMANAL [Concomitant]
     Indication: PRODUCT USED FOR UNKNOWN INDICATION
     Dosage: 4 TABLETS (70 MG, 1 IN 1 WK)
     Route: 048
     Dates: start: 20170614
  9. DULOXETINE HYDROCHLORIDE. [Concomitant]
     Active Substance: DULOXETINE HYDROCHLORIDE
     Indication: PRODUCT USED FOR UNKNOWN INDICATION
     Dosage: 60 MG (60 MG, 1 IN 24 HR)
     Route: 048
     Dates: start: 20150611

REACTIONS (5)
  - Dry mouth [Recovered/Resolved]
  - Dyspnoea [Recovered/Resolved]
  - Product use in unapproved indication [Unknown]
  - Chest discomfort [Recovered/Resolved]
  - Somnolence [Recovered/Resolved]

NARRATIVE: CASE EVENT DATE: 20200130
